FAERS Safety Report 8848056 (Version 1)
Quarter: 2012Q4

REPORT INFORMATION
  Report Type: 
  Country: ES (occurrence: ES)
  Receive Date: 20121018
  Receipt Date: 20121018
  Transmission Date: 20130627
  Serious: Yes (Hospitalization)
  Sender: FDA-Public Use
  Company Number: ES-SHIRE-SPV1-2012-00908

PATIENT
  Age: 28 Year
  Sex: Female

DRUGS (3)
  1. XAGRID [Suspect]
     Indication: ESSENTIAL THROMBOCYTHAEMIA
     Dosage: 1-2 mg/day
     Route: 048
  2. XAGRID [Suspect]
     Dosage: 0.5 mg, 2x/day:bid
     Route: 048
     Dates: start: 200303
  3. AAS [Concomitant]
     Indication: ESSENTIAL THROMBOCYTHAEMIA
     Dosage: 100 mg, 1x/day:qd
     Route: 065
     Dates: start: 200104

REACTIONS (1)
  - Deep vein thrombosis [Recovered/Resolved]
